FAERS Safety Report 13052583 (Version 1)
Quarter: 2016Q4

REPORT INFORMATION
  Report Type: Spontaneous
  Country: US (occurrence: US)
  Receive Date: 20161221
  Receipt Date: 20161221
  Transmission Date: 20170207
  Serious: No
  Sender: FDA-Public Use
  Company Number: US-ALLERGAN-1000083630

PATIENT
  Age: 76 Year
  Sex: Female

DRUGS (3)
  1. BYSTOLIC [Suspect]
     Active Substance: NEBIVOLOL HYDROCHLORIDE
     Dosage: 2.5 MG, QD
     Dates: start: 2007, end: 2014
  2. BYSTOLIC [Suspect]
     Active Substance: NEBIVOLOL HYDROCHLORIDE
     Dosage: 1.25 MG, QD
     Dates: start: 2014
  3. BYSTOLIC [Suspect]
     Active Substance: NEBIVOLOL HYDROCHLORIDE
     Dosage: 1.25 MG, QD
     Dates: start: 201602

REACTIONS (7)
  - Therapeutic response unexpected [Unknown]
  - Intentional product misuse [Unknown]
  - Alopecia [Not Recovered/Not Resolved]
  - Performance fear [Not Recovered/Not Resolved]
  - Dyspnoea exertional [Unknown]
  - Photopsia [Unknown]
  - Left ventricular hypertrophy [Unknown]

NARRATIVE: CASE EVENT DATE: 2007
